FAERS Safety Report 8237067-9 (Version None)
Quarter: 2012Q1

REPORT INFORMATION
  Report Type: 
  Country: None (occurrence: None)
  Receive Date: 20120327
  Receipt Date: 20120321
  Transmission Date: 20120608
  Serious: Yes (Hospitalization, Other)
  Sender: FDA-Public Use
  Company Number: US-PFIZER INC-2012074323

PATIENT
  Sex: Female
  Weight: 82.54 kg

DRUGS (7)
  1. LYRICA [Suspect]
     Indication: GLYCOGEN STORAGE DISEASE TYPE V
  2. LYRICA [Suspect]
     Indication: INTERVERTEBRAL DISC DEGENERATION
  3. SYNTHROID [Concomitant]
     Indication: THYROID DISORDER
     Dosage: 112 UG, DAILY
  4. PERCODAN-DEMI [Suspect]
     Indication: MYALGIA
     Dosage: UNK
     Dates: start: 20110901
  5. LYRICA [Suspect]
     Indication: NERVE COMPRESSION
  6. XANAX [Concomitant]
     Indication: ANXIETY
     Dosage: 1 MG, DAILY
  7. LYRICA [Suspect]
     Indication: FIBROMYALGIA
     Dosage: 150 MG, 2X/DAY
     Route: 048
     Dates: end: 20110901

REACTIONS (8)
  - DYSPHAGIA [None]
  - MYALGIA [None]
  - BLOOD CREATINE PHOSPHOKINASE INCREASED [None]
  - BLOOD CHOLESTEROL INCREASED [None]
  - DEPRESSION [None]
  - WITHDRAWAL SYNDROME [None]
  - NIGHTMARE [None]
  - OVERDOSE [None]
